FAERS Safety Report 15917332 (Version 1)
Quarter: 2019Q1

REPORT INFORMATION
  Report Type: Spontaneous
  Country: US (occurrence: US)
  Receive Date: 20190205
  Receipt Date: 20190205
  Transmission Date: 20190417
  Serious: Yes (Other)
  Sender: FDA-Public Use
  Company Number: US-SHILPA MEDICARE LIMITED-SML-US-2019-00054

PATIENT
  Age: 62 Year
  Sex: Female

DRUGS (3)
  1. AZACITIDINE, UNKNOWN [Suspect]
     Active Substance: AZACITIDINE
     Dosage: SQ DAYS 1 TO 7
  2. VENETOCLAX. [Concomitant]
     Active Substance: VENETOCLAX
     Indication: ACUTE MYELOID LEUKAEMIA
     Route: 065
  3. AZACITIDINE, UNKNOWN [Suspect]
     Active Substance: AZACITIDINE
     Indication: ACUTE MYELOID LEUKAEMIA
     Dosage: SQ DAYS 1 TO 7

REACTIONS (4)
  - Product use in unapproved indication [Unknown]
  - Leukaemia cutis [Unknown]
  - Leukocytosis [Unknown]
  - Clonal evolution [Unknown]
